FAERS Safety Report 6860787-5 (Version None)
Quarter: 2010Q3

REPORT INFORMATION
  Report Type: 
  Country: None (occurrence: None)
  Receive Date: 20100720
  Receipt Date: 20100708
  Transmission Date: 20110219
  Serious: Yes (Hospitalization)
  Sender: FDA-Public Use
  Company Number: JP-JNJFOC-20100702908

PATIENT
  Age: 73 Year
  Sex: Male

DRUGS (7)
  1. RISPERDAL [Suspect]
     Indication: INSOMNIA
     Route: 048
  2. RISPERDAL [Suspect]
     Route: 048
  3. ZOLPIDEM TARTRATE [Suspect]
     Indication: INSOMNIA
     Route: 048
  4. ZOPICLONE [Suspect]
     Indication: INSOMNIA
     Route: 048
  5. LEVOMEPROMAZINE MALEATE [Suspect]
     Indication: INSOMNIA
     Route: 048
  6. LEVOMEPROMAZINE MALEATE [Suspect]
     Route: 048
  7. CLONAZEPAM [Concomitant]
     Indication: INSOMNIA
     Route: 048

REACTIONS (2)
  - RESPIRATORY DYSKINESIA [None]
  - TARDIVE DYSKINESIA [None]
